FAERS Safety Report 12834477 (Version 2)
Quarter: 2016Q4

REPORT INFORMATION
  Report Type: Report from Study
  Country: IT (occurrence: IT)
  Receive Date: 20161010
  Receipt Date: 20161024
  Transmission Date: 20170207
  Serious: Yes (Death)
  Sender: FDA-Public Use
  Company Number: IT-PFIZER INC-2016451141

PATIENT
  Age: 68 Year
  Sex: Female

DRUGS (5)
  1. GAVISCON /00237601/ [Concomitant]
     Active Substance: ALUMINUM HYDROXIDE\MAGNESIUM CARBONATE
     Dosage: UNK UNK, AS NEEDED
     Route: 048
  2. SAMYR /00882301/ [Concomitant]
     Active Substance: ADEMETIONINE
     Dosage: 400 MG, UNK
     Route: 048
  3. SUTENT [Suspect]
     Active Substance: SUNITINIB MALATE
     Indication: METASTATIC RENAL CELL CARCINOMA
     Dosage: A TABLET OF 50 MG, 1X/DAY
     Route: 048
     Dates: start: 20160421
  4. RANITIDINE. [Concomitant]
     Active Substance: RANITIDINE
     Dosage: 300 MG, UNK
     Route: 048
  5. MEDROL [Concomitant]
     Active Substance: METHYLPREDNISOLONE
     Dosage: 16 MG, UNK
     Route: 048

REACTIONS (3)
  - Respiratory failure [Fatal]
  - Respiratory disorder [Fatal]
  - Neoplasm progression [Fatal]

NARRATIVE: CASE EVENT DATE: 201609
